FAERS Safety Report 9155426 (Version 1)
Quarter: 2013Q1

REPORT INFORMATION
  Report Type: Spontaneous
  Country: BR (occurrence: BR)
  Receive Date: 20130311
  Receipt Date: 20130311
  Transmission Date: 20140127
  Serious: Yes (Hospitalization)
  Sender: FDA-Public Use
  Company Number: BR-ASTRAZENECA-2013SE14627

PATIENT
  Age: 54 Year
  Sex: Male
  Weight: 97 kg

DRUGS (7)
  1. OMEPRAZOLE [Suspect]
     Indication: DYSPEPSIA
     Route: 048
  2. OMEPRAZOLE [Suspect]
     Indication: HIATUS HERNIA
     Route: 048
  3. CRESTOR [Suspect]
     Indication: BLOOD CHOLESTEROL INCREASED
     Route: 048
     Dates: end: 201302
  4. CRESTOR [Suspect]
     Indication: BLOOD CHOLESTEROL INCREASED
     Route: 048
  5. TYLENOL [Suspect]
     Indication: HEADACHE
     Dosage: 1 CPD
     Route: 048
     Dates: start: 20130108, end: 20130108
  6. BRILINTA [Suspect]
     Indication: ANGINA PECTORIS
     Route: 048
     Dates: start: 201301
  7. CODEINE [Suspect]
     Indication: HEADACHE
     Route: 048
     Dates: start: 20130108, end: 20130108

REACTIONS (7)
  - Angina pectoris [Recovered/Resolved]
  - Troponin increased [Recovered/Resolved]
  - Headache [Recovered/Resolved]
  - Nausea [Recovered/Resolved]
  - Muscle spasms [Recovered/Resolved]
  - Hyperhidrosis [Recovered/Resolved]
  - Hepatic enzyme increased [Unknown]
